FAERS Safety Report 7958055-3 (Version None)
Quarter: 2011Q4

REPORT INFORMATION
  Report Type: 
  Country: None (occurrence: None)
  Receive Date: 20111205
  Receipt Date: 20111123
  Transmission Date: 20120403
  Serious: Yes (Hospitalization)
  Sender: FDA-Public Use
  Company Number: MX-ELI_LILLY_AND_COMPANY-MX201109008661

PATIENT
  Age: 70 Year
  Sex: Female
  Weight: 73 kg

DRUGS (6)
  1. BYETTA [Suspect]
     Dosage: 5 UG, BID
     Dates: start: 20110923
  2. BYETTA [Suspect]
     Indication: DIABETES MELLITUS
     Dosage: 5 UG, BID
     Route: 058
     Dates: start: 20101101
  3. BYETTA [Suspect]
     Dosage: 10 UG, BID
     Dates: start: 20110822, end: 20110826
  4. BYETTA [Suspect]
     Dosage: 10 UG, BID
  5. DIOVAN HCT [Concomitant]
     Indication: HYPERTENSION
  6. METFORMIN                          /00082701/ [Concomitant]
     Dosage: 1 G, QD

REACTIONS (7)
  - BLOOD POTASSIUM DECREASED [None]
  - NAUSEA [None]
  - BLOOD SODIUM DECREASED [None]
  - BLOOD CALCIUM DECREASED [None]
  - GASTROINTESTINAL INFECTION [None]
  - PYREXIA [None]
  - VOMITING [None]
